FAERS Safety Report 4965973-7 (Version None)
Quarter: 2006Q2

REPORT INFORMATION
  Report Type: 
  Country: None (occurrence: None)
  Receive Date: 20060403
  Receipt Date: 20060323
  Transmission Date: 20061013
  Serious: Yes (Hospitalization)
  Sender: FDA-Public Use
  Company Number: 2006040982

PATIENT
  Age: 50 Year
  Sex: Female

DRUGS (1)
  1. SERTRALINE [Suspect]
     Indication: ILL-DEFINED DISORDER
     Dosage: ORAL
     Route: 048

REACTIONS (7)
  - BLOOD ALBUMIN DECREASED [None]
  - FALL [None]
  - HAEMODIALYSIS [None]
  - HEAD INJURY [None]
  - RESPIRATORY DISORDER [None]
  - SOMNOLENCE [None]
  - SUBARACHNOID HAEMORRHAGE [None]
